FAERS Safety Report 18963156 (Version 1)
Quarter: 2021Q1

REPORT INFORMATION
  Report Type: Spontaneous
  Country: US (occurrence: US)
  Receive Date: 20210303
  Receipt Date: 20210303
  Transmission Date: 20210420
  Serious: Yes (Other)
  Sender: FDA-Public Use
  Company Number: US-SLATE RUN PHARMACEUTICALS-21US000409

PATIENT

DRUGS (4)
  1. VANCOMYCIN HYDROCHLORIDE USP [Suspect]
     Active Substance: VANCOMYCIN HYDROCHLORIDE
     Indication: PRODUCT USED FOR UNKNOWN INDICATION
     Route: 065
  2. BACLOFEN. [Suspect]
     Active Substance: BACLOFEN
     Dosage: UNK
     Route: 037
  3. BACLOFEN. [Suspect]
     Active Substance: BACLOFEN
     Indication: QUADRIPLEGIA
     Dosage: UNK, SLOWLY TAPERED
     Route: 048
  4. BACLOFEN. [Suspect]
     Active Substance: BACLOFEN
     Indication: PROPHYLAXIS
     Dosage: 10 MILLIGRAM, TID
     Route: 048

REACTIONS (2)
  - Acute kidney injury [Recovered/Resolved]
  - Hallucination, auditory [Recovered/Resolved]
